FAERS Safety Report 7945647-0 (Version None)
Quarter: 2011Q4

REPORT INFORMATION
  Report Type: 
  Country: None (occurrence: None)
  Receive Date: 20111129
  Receipt Date: 20111115
  Transmission Date: 20120403
  Serious: Yes (Other)
  Sender: FDA-Public Use
  Company Number: CO-ROCHE-1000365

PATIENT
  Age: 66 Year
  Sex: Female
  Weight: 58.3 kg

DRUGS (2)
  1. PLACEBO [Suspect]
     Indication: RHEUMATOID ARTHRITIS
     Route: 058
     Dates: start: 20110517
  2. ACTEMRA [Suspect]
     Indication: RHEUMATOID ARTHRITIS
     Route: 042
     Dates: start: 20110517

REACTIONS (2)
  - CHOLELITHIASIS [None]
  - HEPATIC STEATOSIS [None]
